FAERS Safety Report 12520706 (Version 1)
Quarter: 2016Q3

REPORT INFORMATION
  Report Type: Spontaneous
  Country: DE (occurrence: DE)
  Receive Date: 20160701
  Receipt Date: 20160701
  Transmission Date: 20161109
  Serious: Yes (Other)
  Sender: FDA-Public Use
  Company Number: DE-DRREDDYS-GER/GER/16/0080984

PATIENT
  Sex: Male
  Weight: 2.99 kg

DRUGS (2)
  1. LAMOTRIGINE. [Suspect]
     Active Substance: LAMOTRIGINE
     Dosage: REDUCTION 12 WEEKS AFTER DELIVERY
     Route: 063
  2. LAMOTRIGINE. [Suspect]
     Active Substance: LAMOTRIGINE
     Indication: EPILEPSY
     Route: 063

REACTIONS (5)
  - Abdominal pain [Unknown]
  - Eczema [Unknown]
  - Hepatic enzyme increased [Unknown]
  - Anticonvulsant drug level above therapeutic [Recovered/Resolved]
  - Exposure during breast feeding [Unknown]
